FAERS Safety Report 21026429 (Version 1)
Quarter: 2022Q2

REPORT INFORMATION
  Report Type: Report from Study
  Country: ES (occurrence: ES)
  Receive Date: 20220630
  Receipt Date: 20220630
  Transmission Date: 20220721
  Serious: Yes (Other)
  Sender: FDA-Public Use
  Company Number: ES-TEVA-2022-ES-2049655

PATIENT

DRUGS (37)
  1. DOXORUBICIN [Suspect]
     Active Substance: DOXORUBICIN
     Indication: Acute lymphocytic leukaemia
     Dosage: REINDUCTION PHASE; OVER 1 HOUR
     Route: 041
  2. PREDNISONE [Suspect]
     Active Substance: PREDNISONE
     Indication: Acute lymphocytic leukaemia
     Dosage: INDUCTION IA PHASE
     Route: 048
  3. PREDNISONE [Suspect]
     Active Substance: PREDNISONE
     Dosage: INDUCTION IA PHASE
     Route: 037
  4. PREDNISONE [Suspect]
     Active Substance: PREDNISONE
     Dosage: INDUCTION IB PHASE
     Route: 037
  5. PREDNISONE [Suspect]
     Active Substance: PREDNISONE
     Dosage: CONSOLIDATION PHASE
     Route: 037
  6. PREDNISONE [Suspect]
     Active Substance: PREDNISONE
     Dosage: REINDUCTION PHASE
     Route: 037
  7. PREDNISONE [Suspect]
     Active Substance: PREDNISONE
     Dosage: MAINTENANCE PHASE
     Route: 037
  8. PREDNISOLONE [Suspect]
     Active Substance: PREDNISOLONE
     Indication: Acute lymphocytic leukaemia
     Dosage: INDUCTION IA PHASE, IV PUSH
     Route: 042
  9. VINCRISTINE [Suspect]
     Active Substance: VINCRISTINE
     Indication: Acute lymphocytic leukaemia
     Dosage: INDUCTION IA PHASE, IV PUSH
     Route: 042
  10. VINCRISTINE [Suspect]
     Active Substance: VINCRISTINE
     Dosage: REINDUCTION PHASE, IV PUSH
     Route: 042
  11. DAUNORUBICIN [Suspect]
     Active Substance: DAUNORUBICIN
     Indication: Acute lymphocytic leukaemia
     Dosage: INDUCTION IA PHASE
     Route: 041
  12. ASPARAGINASE [Suspect]
     Active Substance: ASPARAGINASE
     Indication: Acute lymphocytic leukaemia
     Dosage: INDUCTION IA PHASE
     Route: 030
  13. ASPARAGINASE [Suspect]
     Active Substance: ASPARAGINASE
     Dosage: REINDUCTION PHASE
     Route: 030
  14. METHOTREXATE [Suspect]
     Active Substance: METHOTREXATE
     Indication: Acute lymphocytic leukaemia
     Dosage: INDUCTION IA PHASE
     Route: 037
  15. METHOTREXATE [Suspect]
     Active Substance: METHOTREXATE
     Dosage: INDUCTION IB PHASE
     Route: 037
  16. METHOTREXATE [Suspect]
     Active Substance: METHOTREXATE
     Dosage: CONSOLIDATION PHASE
     Route: 037
  17. METHOTREXATE [Suspect]
     Active Substance: METHOTREXATE
     Dosage: REINDUCTION PHASE
     Route: 037
  18. METHOTREXATE [Suspect]
     Active Substance: METHOTREXATE
     Dosage: MAINTENANCE PHASE
     Route: 037
  19. METHOTREXATE [Suspect]
     Active Substance: METHOTREXATE
     Dosage: CONSOLIDATION PHASE; OVER 24 HOURS
     Route: 041
  20. METHOTREXATE [Suspect]
     Active Substance: METHOTREXATE
     Dosage: MAINTENANCE PHASE
     Route: 048
  21. CYTARABINE [Suspect]
     Active Substance: CYTARABINE
     Indication: Acute lymphocytic leukaemia
     Dosage: INDUCTION IA PHASE
     Route: 037
  22. CYTARABINE [Suspect]
     Active Substance: CYTARABINE
     Dosage: INDUCTION IB PHASE
     Route: 037
  23. CYTARABINE [Suspect]
     Active Substance: CYTARABINE
     Dosage: CONSOLIDATION PHASE
     Route: 037
  24. CYTARABINE [Suspect]
     Active Substance: CYTARABINE
     Dosage: REINDUCTION PHASE
     Route: 037
  25. CYTARABINE [Suspect]
     Active Substance: CYTARABINE
     Dosage: MAINTENANCE PHASE
     Route: 037
  26. CYCLOPHOSPHAMIDE [Suspect]
     Active Substance: CYCLOPHOSPHAMIDE
     Indication: Acute lymphocytic leukaemia
     Dosage: INDUCTION IB PHASE; OVER 1 HOUR
     Route: 041
  27. CYCLOPHOSPHAMIDE [Suspect]
     Active Substance: CYCLOPHOSPHAMIDE
     Dosage: REINDUCTION PHASE; OVER 1 HOUR
     Route: 041
  28. CYTARABINE [Suspect]
     Active Substance: CYTARABINE
     Indication: Acute lymphocytic leukaemia
     Dosage: INDUCTION IB PHASE; OVER 1 HOUR
     Route: 041
  29. CYTARABINE [Suspect]
     Active Substance: CYTARABINE
     Dosage: REINDUCTION PHASE, IV PUSH
     Route: 042
  30. MERCAPTOPURINE [Suspect]
     Active Substance: MERCAPTOPURINE
     Indication: Acute lymphocytic leukaemia
     Dosage: INDUCTION IB PHASE
     Route: 048
  31. MERCAPTOPURINE [Suspect]
     Active Substance: MERCAPTOPURINE
     Dosage: CONSOLIDATION PHASE
     Route: 048
  32. MERCAPTOPURINE [Suspect]
     Active Substance: MERCAPTOPURINE
     Dosage: MAINTENANCE PHASE
     Route: 048
  33. DEXAMETHASONE [Suspect]
     Active Substance: DEXAMETHASONE
     Indication: Acute lymphocytic leukaemia
     Dosage: REINDUCTION PHASE
     Route: 048
  34. DEXAMETHASONE [Suspect]
     Active Substance: DEXAMETHASONE
     Dosage: REINDUCTION PHASE, IV PUSH
     Route: 042
  35. THIOGUANINE ANHYDROUS [Suspect]
     Active Substance: THIOGUANINE ANHYDROUS
     Indication: Acute lymphocytic leukaemia
     Dosage: REINDUCTION PHASE
     Route: 048
  36. PEG/L-ASPARAGINASE [Suspect]
     Active Substance: PEGASPARGASE
     Indication: Acute lymphocytic leukaemia
     Dosage: MAINTENANCE PHASE
     Route: 030
  37. LEUCOVORIN [Concomitant]
     Active Substance: LEUCOVORIN
     Indication: Prophylaxis
     Route: 065

REACTIONS (1)
  - Embolism venous [Unknown]
